FAERS Safety Report 18494515 (Version 1)
Quarter: 2020Q4

REPORT INFORMATION
  Report Type: Spontaneous
  Country: CA (occurrence: CA)
  Receive Date: 20201112
  Receipt Date: 20201112
  Transmission Date: 20210114
  Serious: Yes (Hospitalization)
  Sender: FDA-Public Use
  Company Number: CA-UNICHEM PHARMACEUTICALS (USA) INC-UCM202011-001317

PATIENT
  Age: 57 Year
  Sex: Female

DRUGS (2)
  1. IRBESARTAN TABLETS [Suspect]
     Active Substance: IRBESARTAN
     Dosage: UNKNOWN
     Route: 048
  2. IRBESARTAN TABLETS [Suspect]
     Active Substance: IRBESARTAN
     Indication: ACCIDENTAL EXPOSURE TO PRODUCT
     Dosage: UNKNOWN

REACTIONS (7)
  - Stridor [Recovered/Resolved]
  - Dizziness [Recovered/Resolved]
  - Anaphylactic reaction [Recovered/Resolved]
  - Hypotension [Recovered/Resolved]
  - Nausea [Recovered/Resolved]
  - Respiratory distress [Recovered/Resolved]
  - Angioedema [Recovered/Resolved]
